FAERS Safety Report 21897348 (Version 1)
Quarter: 2023Q1

REPORT INFORMATION
  Report Type: Spontaneous
  Country: NP (occurrence: NP)
  Receive Date: 20230123
  Receipt Date: 20230123
  Transmission Date: 20230418
  Serious: Yes (Life-Threatening, Hospitalization, Other)
  Sender: FDA-Public Use
  Company Number: NP-MLMSERVICE-20230109-4029656-1

PATIENT
  Age: 22 Year
  Sex: Male

DRUGS (2)
  1. CIPROFLOXACIN [Suspect]
     Active Substance: CIPROFLOXACIN
     Indication: Postoperative wound infection
  2. ACETAMINOPHEN [Concomitant]
     Active Substance: ACETAMINOPHEN
     Indication: Pyrexia

REACTIONS (4)
  - Hepatitis cholestatic [Recovered/Resolved]
  - Toxic epidermal necrolysis [Recovered/Resolved]
  - Drug-induced liver injury [Recovered/Resolved]
  - Prescription drug used without a prescription [Recovered/Resolved]
